FAERS Safety Report 14324652 (Version 1)
Quarter: 2017Q4

REPORT INFORMATION
  Report Type: Spontaneous
  Country: CA (occurrence: CA)
  Receive Date: 20171226
  Receipt Date: 20171226
  Transmission Date: 20180321
  Serious: Yes (Other)
  Sender: FDA-Public Use
  Company Number: CA-MYLANLABS-2017M1080209

PATIENT
  Sex: Female

DRUGS (1)
  1. EPINEPHRINE. [Suspect]
     Active Substance: EPINEPHRINE
     Indication: FOOD ALLERGY
     Route: 042

REACTIONS (12)
  - Insomnia [Unknown]
  - Dysphonia [Unknown]
  - Pruritus [Unknown]
  - Mouth ulceration [Unknown]
  - Pharyngeal ulceration [Unknown]
  - Drug ineffective [Unknown]
  - Nasal ulcer [Unknown]
  - Asthenia [Unknown]
  - Blood pressure decreased [Unknown]
  - Dyspnoea [Unknown]
  - Disturbance in attention [Unknown]
  - Malaise [Unknown]

NARRATIVE: CASE EVENT DATE: 201712
